FAERS Safety Report 7457302-4 (Version None)
Quarter: 2011Q1

REPORT INFORMATION
  Report Type: 
  Country: None (occurrence: None)
  Receive Date: 20110302
  Receipt Date: 20101210
  Transmission Date: 20110831
  Serious: No
  Sender: FDA-Public Use
  Company Number: 023648

PATIENT
  Sex: Female

DRUGS (1)
  1. CIMZIA [Suspect]
     Indication: CROHN'S DISEASE
     Dosage: (LYO SUBCUTANEOUS)
     Route: 058
     Dates: start: 20090121

REACTIONS (1)
  - UNEVALUABLE EVENT [None]
